FAERS Safety Report 6016667-0 (Version None)
Quarter: 2008Q4

REPORT INFORMATION
  Report Type: 
  Country: None (occurrence: None)
  Receive Date: 20081222
  Receipt Date: 20081218
  Transmission Date: 20090506
  Serious: Yes (Death, Life-Threatening)
  Sender: FDA-Public Use
  Company Number: PHHY2008JP31273

PATIENT
  Age: 73 Year
  Sex: Male

DRUGS (5)
  1. NEORAL [Suspect]
     Indication: ASTHMA
     Dosage: UNK
     Route: 048
     Dates: start: 20081117, end: 20081211
  2. NEORAL [Suspect]
     Dosage: 25 MG, BID
     Dates: start: 20081212
  3. CELESTONE [Suspect]
     Indication: ASTHMA
     Dosage: 4 MG/DAY
     Route: 042
     Dates: start: 20081028, end: 20081101
  4. CELESTONE [Suspect]
     Dosage: 1 MG/DAY
     Route: 042
     Dates: start: 20081101
  5. STEROIDS NOS [Concomitant]
     Indication: ASTHMA
     Dosage: UNK
     Route: 042
     Dates: start: 20081028

REACTIONS (6)
  - ACUTE MYOCARDIAL INFARCTION [None]
  - ASPERGILLOSIS [None]
  - BLOOD BETA-D-GLUCAN INCREASED [None]
  - C-REACTIVE PROTEIN INCREASED [None]
  - PNEUMONIA FUNGAL [None]
  - PYREXIA [None]
